FAERS Safety Report 17098669 (Version 1)
Quarter: 2019Q4

REPORT INFORMATION
  Report Type: Report from Study
  Country: US (occurrence: US)
  Receive Date: 20191202
  Receipt Date: 20191202
  Transmission Date: 20200122
  Serious: Yes (Death)
  Sender: FDA-Public Use
  Company Number: US-ROCHE-2231248

PATIENT
  Age: 80 Year
  Sex: Female

DRUGS (9)
  1. ROPINIROLE. [Concomitant]
     Active Substance: ROPINIROLE
  2. ASPRIN [Concomitant]
     Active Substance: ASPIRIN
  3. RANITIDINE. [Concomitant]
     Active Substance: RANITIDINE
  4. ATORVASTATIN [Concomitant]
     Active Substance: ATORVASTATIN
  5. MISOPROSTOL. [Concomitant]
     Active Substance: MISOPROSTOL
  6. TAMOXIFEN [Concomitant]
     Active Substance: TAMOXIFEN
  7. LUCENTIS [Suspect]
     Active Substance: RANIBIZUMAB
     Indication: CHOROIDAL NEOVASCULARISATION
  8. ALLOPURINOL. [Concomitant]
     Active Substance: ALLOPURINOL
  9. LUCENTIS [Suspect]
     Active Substance: RANIBIZUMAB
     Indication: NEOVASCULAR AGE-RELATED MACULAR DEGENERATION
     Route: 050
     Dates: start: 20161101, end: 201805

REACTIONS (1)
  - Death [Fatal]

NARRATIVE: CASE EVENT DATE: 20180606
